FAERS Safety Report 4717770-5 (Version None)
Quarter: 2005Q3

REPORT INFORMATION
  Report Type: 
  Country: None (occurrence: None)
  Receive Date: 20050715
  Receipt Date: 20041228
  Transmission Date: 20060218
  Serious: Yes (Hospitalization)
  Sender: FDA-Public Use
  Company Number: 2004-00983

PATIENT
  Sex: Male

DRUGS (12)
  1. . [Concomitant]
  2. INTEGRILIN [Suspect]
     Indication: MYOCARDIAL INFARCTION
     Dosage: SEE IMAGE
     Route: 041
     Dates: start: 20041225, end: 20041226
  3. INTEGRILIN [Suspect]
     Indication: MYOCARDIAL INFARCTION
     Dosage: SEE IMAGE
     Route: 041
     Dates: start: 20041225, end: 20041226
  4. INTEGRILIN [Suspect]
     Indication: MYOCARDIAL INFARCTION
     Dosage: SEE IMAGE
     Route: 041
     Dates: start: 20041227, end: 20041227
  5. INTEGRILIN [Suspect]
     Indication: MYOCARDIAL INFARCTION
     Dosage: SEE IMAGE
     Route: 041
     Dates: start: 20041227
  6. . [Concomitant]
  7. .. [Concomitant]
  8. AMIODARONE HCL [Concomitant]
  9. LOPRESSOR [Concomitant]
  10. ZOCOR [Concomitant]
  11. ALLOPURINOL [Concomitant]
  12. DIOVAN [Concomitant]

REACTIONS (3)
  - BLOOD CREATININE INCREASED [None]
  - CREATININE RENAL CLEARANCE DECREASED [None]
  - HAEMATURIA [None]
